FAERS Safety Report 7582158-9 (Version None)
Quarter: 2011Q2

REPORT INFORMATION
  Report Type: 
  Country: None (occurrence: None)
  Receive Date: 20110630
  Receipt Date: 20090717
  Transmission Date: 20111010
  Serious: No
  Sender: FDA-Public Use
  Company Number: 2009BI022345

PATIENT
  Age: 47 Year
  Sex: Female

DRUGS (1)
  1. TYSABRI [Suspect]
     Indication: MULTIPLE SCLEROSIS
     Route: 042
     Dates: start: 20061011

REACTIONS (20)
  - GASTRIC DISORDER [None]
  - MEMORY IMPAIRMENT [None]
  - ABDOMINAL PAIN UPPER [None]
  - ABDOMINAL PAIN [None]
  - DERMATITIS CONTACT [None]
  - PYREXIA [None]
  - CHEST PAIN [None]
  - ASTHENIA [None]
  - FATIGUE [None]
  - TEMPERATURE INTOLERANCE [None]
  - FALL [None]
  - VISUAL IMPAIRMENT [None]
  - RASH [None]
  - NEUROGENIC BLADDER [None]
  - CONCUSSION [None]
  - PAIN [None]
  - HYPOAESTHESIA [None]
  - NAUSEA [None]
  - COGNITIVE DISORDER [None]
  - NEUROGENIC BOWEL [None]
